FAERS Safety Report 8552755-2 (Version None)
Quarter: 2012Q3

REPORT INFORMATION
  Report Type: 
  Country: None (occurrence: None)
  Receive Date: 20120724
  Receipt Date: 20120724
  Transmission Date: 20120928
  Serious: Yes (Disabling)
  Sender: FDA-Public Use
  Company Number: None

PATIENT
  Sex: Male
  Weight: 90.7194 kg

DRUGS (5)
  1. LEVOFLOXACIN (LEVAQUIN) [Suspect]
     Indication: URINARY TRACT INFECTION
     Dosage: ORAL AND IV
     Route: 048
     Dates: end: 20000101
  2. LEVOFLOXACIN (LEVAQUIN) [Suspect]
     Indication: BENIGN PROSTATIC HYPERPLASIA
     Dosage: ORAL AND IV
     Route: 048
     Dates: end: 20000101
  3. CIPRO [Suspect]
     Indication: URINARY TRACT INFECTION
     Dosage: ORAL AND IV
     Route: 048
  4. CIPRO [Suspect]
     Indication: BENIGN PROSTATIC HYPERPLASIA
     Dosage: ORAL AND IV
     Route: 048
  5. CIPRO [Suspect]
     Indication: SEPSIS
     Dosage: ORAL AND IV
     Route: 048

REACTIONS (7)
  - NERVOUS SYSTEM DISORDER [None]
  - PARAESTHESIA [None]
  - PRURITUS [None]
  - HYPOAESTHESIA [None]
  - BACTERAEMIA [None]
  - UROSEPSIS [None]
  - URINARY TRACT INFECTION [None]
